FAERS Safety Report 6907629-7 (Version None)
Quarter: 2010Q3

REPORT INFORMATION
  Report Type: 
  Country: None (occurrence: None)
  Receive Date: 20100719
  Receipt Date: 20100427
  Transmission Date: 20110219
  Serious: Yes (Hospitalization)
  Sender: FDA-Public Use
  Company Number: DEP_00355_2010

PATIENT
  Age: 62 Year
  Sex: Female
  Weight: 70.3075 kg

DRUGS (5)
  1. GLUMETZA [Suspect]
     Indication: DIABETES MELLITUS
     Dosage: (1000 MG QD ORAL)
     Route: 048
     Dates: start: 20100201, end: 20100401
  2. NEXIUM /014793202/ [Concomitant]
  3. DIOVAN [Concomitant]
  4. GLIPIZIDE [Concomitant]
  5. STATIN DRUG [Concomitant]

REACTIONS (3)
  - DIARRHOEA [None]
  - NAUSEA [None]
  - VOMITING [None]
